FAERS Safety Report 5167083-5 (Version None)
Quarter: 2006Q4

REPORT INFORMATION
  Report Type: 
  Country: None (occurrence: None)
  Receive Date: 20061129
  Receipt Date: 20061117
  Transmission Date: 20070319
  Serious: Yes (Hospitalization)
  Sender: FDA-Public Use
  Company Number: 2006135317

PATIENT
  Age: 69 Year
  Sex: Female

DRUGS (1)
  1. TOTALIP (ATORVASTATIN) [Suspect]
     Indication: HYPERCHOLESTEROLAEMIA
     Dosage: 20 MG (1 IN 1 D), ORAL
     Route: 048
     Dates: start: 20040511, end: 20050809

REACTIONS (5)
  - ANOREXIA [None]
  - ASTHENIA [None]
  - HEPATITIS [None]
  - MYALGIA [None]
  - MYOSITIS [None]
